FAERS Safety Report 8886203 (Version 4)
Quarter: 2014Q1

REPORT INFORMATION
  Report Type: Spontaneous
  Country: US (occurrence: US)
  Receive Date: 20121105
  Receipt Date: 20140129
  Transmission Date: 20141002
  Serious: Yes (Other)
  Sender: FDA-Public Use
  Company Number: US-PFIZER INC-2012274003

PATIENT
  Age: 66 Year
  Sex: Female
  Weight: 86.17 kg

DRUGS (5)
  1. LYRICA [Suspect]
     Indication: FIBROMYALGIA
     Dosage: UNKNOWN
     Route: 048
     Dates: start: 2011
  2. LYRICA [Suspect]
     Dosage: 100 MG, 3-4 TIMES A DAY
     Route: 048
     Dates: start: 2012
  3. LYRICA [Suspect]
     Dosage: 100MG ORAL CAPSULE IN THE MORNING AND TWO CAPSULES OF 100MG TOGETHER AT NIGHT
     Route: 048
  4. CELLCEPT [Concomitant]
     Indication: RENAL DISORDER
     Dosage: UNK
  5. PROGRAF [Concomitant]
     Indication: RENAL DISORDER
     Dosage: UNK

REACTIONS (1)
  - Weight increased [Unknown]
